FAERS Safety Report 4455397-3 (Version None)
Quarter: 2004Q3

REPORT INFORMATION
  Report Type: 
  Country: None (occurrence: None)
  Receive Date: 20040830
  Receipt Date: 20040601
  Transmission Date: 20050211
  Serious: No
  Sender: FDA-Public Use
  Company Number: 205342

PATIENT
  Age: 25 Year
  Sex: Female
  Weight: 61.7 kg

DRUGS (6)
  1. XOLAIR [Suspect]
     Indication: ASTHMA
     Dosage: 150 MG,4/WEEK,SUBCUTANEOUS
     Route: 058
     Dates: start: 20031017, end: 20040312
  2. MEDROL [Concomitant]
  3. PULMICORT [Concomitant]
  4. ADVAIR DISKUS (SALMETEROL XINAFOATE, FLUTICASONE PROPIONATE) [Concomitant]
  5. MAXAIR [Concomitant]
  6. STEROIDS NOS (STEROID NOS) [Concomitant]

REACTIONS (2)
  - ALOPECIA [None]
  - HYPOTHYROIDISM [None]
